FAERS Safety Report 9825903 (Version 1)
Quarter: 2013Q4

REPORT INFORMATION
  Report Type: Spontaneous
  Country: US (occurrence: None)
  Receive Date: 20131223
  Receipt Date: 20131223
  Transmission Date: 20140711
  Serious: No
  Sender: FDA-Public Use
  Company Number: 219661LEO

PATIENT
  Age: 53 Year
  Sex: Male

DRUGS (1)
  1. PICATO [Suspect]
     Indication: ACTINIC KERATOSIS
     Dosage: TOPICAL
     Dates: start: 20121110

REACTIONS (4)
  - Erythema [None]
  - Skin exfoliation [None]
  - Burning sensation [None]
  - Off label use [None]
